FAERS Safety Report 19669151 (Version 1)
Quarter: 2021Q3

REPORT INFORMATION
  Report Type: Spontaneous
  Country: NO (occurrence: NO)
  Receive Date: 20210806
  Receipt Date: 20210806
  Transmission Date: 20211014
  Serious: Yes (Hospitalization)
  Sender: FDA-Public Use
  Company Number: NO-ORGANON-O2108NOR000192

PATIENT
  Age: 43 Year
  Sex: Male

DRUGS (5)
  1. XOLAIR [Interacting]
     Active Substance: OMALIZUMAB
     Indication: URTICARIA CHRONIC
     Dosage: 150 MILLIGRAM, EVERY 6 WEEKS
     Route: 058
     Dates: start: 20200601, end: 20210401
  2. COMIRNATY [Interacting]
     Active Substance: TOZINAMERAN
     Indication: IMMUNISATION
     Dosage: DOSE NO. IN SERIES: NOT APPLICABLE
     Route: 030
     Dates: start: 20210521
  3. VAXZEVRIA [Interacting]
     Active Substance: AZD-1222
     Indication: IMMUNISATION
     Dosage: DOSE NO. IN SERIES: 1 VACCINATION SITE: LEFTARM. TIME OF VACCINATION: 15:00; REPORTED AS VAXZEVRIA
     Route: 030
     Dates: start: 20210218
  4. AERIUS (DESLORATADINE) [Suspect]
     Active Substance: DESLORATADINE
     Indication: URTICARIA CHRONIC
     Dosage: 5MG, 2?4 TABLETS DAILY
     Route: 048
     Dates: start: 20200401, end: 20210522
  5. DYMISTA [Interacting]
     Active Substance: AZELASTINE HYDROCHLORIDE\FLUTICASONE PROPIONATE
     Indication: HYPERSENSITIVITY
     Dosage: 1 DOSAGE FORM, QD
     Route: 045
     Dates: start: 20210201, end: 20210622

REACTIONS (14)
  - Bell^s palsy [Unknown]
  - Vision blurred [Unknown]
  - Headache [Recovering/Resolving]
  - Headache [Recovering/Resolving]
  - Dizziness [Recovering/Resolving]
  - Malaise [Unknown]
  - Muscle contractions involuntary [Unknown]
  - Presyncope [Unknown]
  - COVID-19 immunisation [Recovering/Resolving]
  - Drug interaction [Recovering/Resolving]
  - Tension headache [Recovered/Resolved]
  - Tinnitus [Not Recovered/Not Resolved]
  - Eye irritation [Unknown]
  - Dizziness postural [Recovering/Resolving]

NARRATIVE: CASE EVENT DATE: 20210218
